FAERS Safety Report 11675057 (Version 4)
Quarter: 2015Q4

REPORT INFORMATION
  Report Type: Spontaneous
  Country: US (occurrence: US)
  Receive Date: 20151028
  Receipt Date: 20151124
  Transmission Date: 20160304
  Serious: Yes (Hospitalization)
  Sender: FDA-Public Use
  Company Number: US-PURDUE PHARMA-USA-2015-0127053

PATIENT
  Age: 33 Year
  Sex: Male

DRUGS (2)
  1. OXYCONTIN [Suspect]
     Active Substance: OXYCODONE HYDROCHLORIDE
     Indication: EPIDIDYMITIS
     Dosage: 20 MG, BID
     Route: 048
     Dates: start: 201508, end: 201510
  2. OXYCONTIN [Suspect]
     Active Substance: OXYCODONE HYDROCHLORIDE
     Indication: ANALGESIC THERAPY
     Dosage: 20 MG, BID
     Route: 048
     Dates: start: 201510

REACTIONS (11)
  - Insomnia [Unknown]
  - Extrasystoles [Unknown]
  - Head discomfort [Unknown]
  - Panic attack [Unknown]
  - Wrong technique in product usage process [Unknown]
  - Cold sweat [Recovered/Resolved]
  - Heart rate increased [Recovered/Resolved]
  - Throat tightness [Recovered/Resolved]
  - Restlessness [Unknown]
  - Product quality issue [Unknown]
  - Dyspnoea [Unknown]

NARRATIVE: CASE EVENT DATE: 201508
